FAERS Safety Report 18880001 (Version 1)
Quarter: 2021Q1

REPORT INFORMATION
  Report Type: Report from Study
  Country: US (occurrence: US)
  Receive Date: 20210211
  Receipt Date: 20210211
  Transmission Date: 20210420
  Serious: Yes (Other)
  Sender: FDA-Public Use
  Company Number: US-PFIZER INC-2021108132

PATIENT

DRUGS (2)
  1. COMBIVIR [Suspect]
     Active Substance: LAMIVUDINE\ZIDOVUDINE
     Dosage: UNK
     Route: 064
     Dates: start: 20000606
  2. VIRACEPT [Suspect]
     Active Substance: NELFINAVIR MESYLATE
     Dosage: 2500 MG, DAILY
     Route: 064
     Dates: start: 20000606

REACTIONS (2)
  - Cystic lymphangioma [Unknown]
  - Maternal exposure during pregnancy [Unknown]

NARRATIVE: CASE EVENT DATE: 20000606
